FAERS Safety Report 6326031-2 (Version None)
Quarter: 2009Q3

REPORT INFORMATION
  Report Type: 
  Country: None (occurrence: None)
  Receive Date: 20090820
  Receipt Date: 20090810
  Transmission Date: 20100115
  Serious: Yes (Other)
  Sender: FDA-Public Use
  Company Number: 001#1#2007-00079

PATIENT
  Sex: Female

DRUGS (1)
  1. ROTIGOTINE (NEUPRO-6MG/24H) [Suspect]
     Indication: PARKINSON'S DISEASE
     Dosage: (DAILY 6 MILLIGRAM/24HOURS;UNIT DOSE:6 MILLIGRAM/24HOURS TRANSDERMAL)
     Route: 062
     Dates: start: 20061101, end: 20070201

REACTIONS (5)
  - APPLICATION SITE ERYTHEMA [None]
  - APPLICATION SITE HYPERSENSITIVITY [None]
  - APPLICATION SITE PAIN [None]
  - APPLICATION SITE PRURITUS [None]
  - APPLICATION SITE VESICLES [None]
